FAERS Safety Report 5799768-1 (Version None)
Quarter: 2008Q2

REPORT INFORMATION
  Report Type: 
  Country: None (occurrence: None)
  Receive Date: 20080601
  Receipt Date: 20080129
  Transmission Date: 20081010
  Serious: No
  Sender: FDA-Public Use
  Company Number: US200802000229

PATIENT
  Age: 56 Year
  Sex: Female
  Weight: 86.2 kg

DRUGS (6)
  1. BYETTA [Suspect]
     Indication: INSULIN-REQUIRING TYPE 2 DIABETES MELLITUS
     Dosage: 5 UG, 2/D, SUBCUTANEOUS ; 10 UG, 2/D, SUBCUTANEOUS
     Route: 058
  2. NOVOLIN 70/30 [Concomitant]
  3. LANTUS [Concomitant]
  4. ALTACE [Concomitant]
  5. MAXIDE (HYDROCHLOROTHIAZIDE, TRIAMTERENE) [Concomitant]
  6. PLAVIX [Concomitant]

REACTIONS (5)
  - BLOOD PRESSURE INADEQUATELY CONTROLLED [None]
  - COUGH [None]
  - NASOPHARYNGITIS [None]
  - PAIN [None]
  - RHINORRHOEA [None]
